FAERS Safety Report 4447266-X (Version None)
Quarter: 2004Q3

REPORT INFORMATION
  Report Type: 
  Country: None (occurrence: None)
  Receive Date: 20040813
  Receipt Date: 20040629
  Transmission Date: 20050211
  Serious: No
  Sender: FDA-Public Use
  Company Number: S04-USA-04057-01

PATIENT
  Age: 88 Year
  Sex: Male

DRUGS (7)
  1. NAMENDA [Suspect]
     Indication: DEMENTIA ALZHEIMER'S TYPE
     Dosage: 10 MG QD PO
     Route: 048
     Dates: start: 20040601
  2. ARICEPT [Concomitant]
  3. RISPERDAL [Concomitant]
  4. LIPITOR [Concomitant]
  5. ACTOS [Concomitant]
  6. LOPRESSOR [Concomitant]
  7. MULTIVITAMIN [Concomitant]

REACTIONS (2)
  - APATHY [None]
  - ASTHENIA [None]
